FAERS Safety Report 24739061 (Version 2)
Quarter: 2024Q4

REPORT INFORMATION
  Report Type: Spontaneous
  Country: US (occurrence: US)
  Receive Date: 20241216
  Receipt Date: 20241216
  Transmission Date: 20250115
  Serious: Yes (Hospitalization, Disabling, Other)
  Sender: ALEXION PHARMACEUTICALS
  Company Number: US-AstraZeneca-2024A209915

PATIENT
  Age: 67 Year
  Weight: 70.11 kg

DRUGS (21)
  1. CRESTOR [Suspect]
     Active Substance: ROSUVASTATIN CALCIUM
     Dosage: UNK
     Route: 065
  2. CRESTOR [Suspect]
     Active Substance: ROSUVASTATIN CALCIUM
     Dosage: UNK
     Route: 065
  3. CRESTOR [Suspect]
     Active Substance: ROSUVASTATIN CALCIUM
     Dosage: UNK
     Route: 065
  4. CRESTOR [Suspect]
     Active Substance: ROSUVASTATIN CALCIUM
     Dosage: UNK
     Route: 065
  5. VUDALIMAB [Suspect]
     Active Substance: VUDALIMAB
     Indication: Adenocarcinoma
     Dosage: 10 MILLILITRE PER KILOGRAM
     Route: 042
  6. VUDALIMAB [Suspect]
     Active Substance: VUDALIMAB
     Dosage: 10 MILLILITRE PER KILOGRAM
  7. CABAZITAXEL [Suspect]
     Active Substance: CABAZITAXEL
     Indication: Adenocarcinoma
     Dosage: 15 MILLIGRAM/SQ. METER
     Route: 042
  8. CABAZITAXEL [Suspect]
     Active Substance: CABAZITAXEL
     Dosage: 15 MILLIGRAM/SQ. METER
  9. CARBOPLATIN [Suspect]
     Active Substance: CARBOPLATIN
     Indication: Adenocarcinoma
     Dosage: AUC3 MG/ML/MIN
     Route: 042
  10. CARBOPLATIN [Suspect]
     Active Substance: CARBOPLATIN
     Dosage: AUC3 MG/ML/MIN
  11. MEGESTROL ACETATE [Concomitant]
     Active Substance: MEGESTROL ACETATE
     Indication: Adenocarcinoma
     Dosage: UNK
  12. PANTOPRAZOLE [Concomitant]
     Active Substance: PANTOPRAZOLE
     Indication: Adenocarcinoma
     Dosage: UNK
  13. BIOTIN [Concomitant]
     Active Substance: BIOTIN
  14. MIRALAX [Concomitant]
     Active Substance: POLYETHYLENE GLYCOL 3350
  15. MORPHINE [Concomitant]
     Active Substance: MORPHINE
  16. GABAPENTIN [Concomitant]
     Active Substance: GABAPENTIN
  17. OXYCODONE [Concomitant]
     Active Substance: OXYCODONE
  18. METHOCARBAMOL [Concomitant]
     Active Substance: METHOCARBAMOL
  19. ATROPINE [Concomitant]
     Active Substance: ATROPINE
  20. EFFEXOR [Concomitant]
     Active Substance: VENLAFAXINE HYDROCHLORIDE
  21. HERBALS\TETRAHYDROCANNABINOL UNSPECIFIED [Concomitant]
     Active Substance: HERBALS\TETRAHYDROCANNABINOL UNSPECIFIED

REACTIONS (12)
  - Back pain [Not Recovered/Not Resolved]
  - Skin ulcer [Not Recovered/Not Resolved]
  - Metastases to spine [Unknown]
  - Oedema [Unknown]
  - Insomnia [Unknown]
  - Hypoalbuminaemia [Unknown]
  - Hyperlipidaemia [Unknown]
  - Bone pain [Unknown]
  - Decreased appetite [Unknown]
  - Hyperglycaemia [Unknown]
  - Mobility decreased [Unknown]
  - Constipation [Unknown]
